FAERS Safety Report 23983513 (Version 1)
Quarter: 2024Q2

REPORT INFORMATION
  Report Type: Spontaneous
  Country: GB (occurrence: GB)
  Receive Date: 20240617
  Receipt Date: 20240617
  Transmission Date: 20240716
  Serious: Yes (Other)
  Sender: FDA-Public Use
  Company Number: GB-GERMAN-LIT/GBR/24/0008544

PATIENT
  Age: 55 Year
  Sex: Male

DRUGS (3)
  1. OLANZAPINE [Suspect]
     Active Substance: OLANZAPINE
     Indication: Schizophrenia
  2. FLUPENTIXOL [Concomitant]
     Active Substance: FLUPENTIXOL
     Indication: Schizophrenia
  3. LURASIDONE [Concomitant]
     Active Substance: LURASIDONE
     Indication: Schizophrenia
     Dosage: EVERY NIGHTLY

REACTIONS (1)
  - Drug ineffective [Unknown]
